FAERS Safety Report 10226405 (Version 1)
Quarter: 2014Q2

REPORT INFORMATION
  Report Type: Spontaneous
  Country: ES (occurrence: ES)
  Receive Date: 20140609
  Receipt Date: 20140609
  Transmission Date: 20141212
  Serious: Yes (Other)
  Sender: FDA-Public Use
  Company Number: ES-B.I. PHARMACEUTICALS,INC./RIDGEFIELD-2014-BI-25136ES

PATIENT
  Age: 86 Year
  Sex: Male

DRUGS (2)
  1. PRADAXA [Suspect]
     Indication: ARRHYTHMIA
     Dosage: 220 MG
     Route: 048
     Dates: start: 2014, end: 20140407
  2. ACETYLSALICYLIC ACID [Suspect]
     Indication: ARRHYTHMIA
     Dosage: STRENGTH AND DAILY DOSE: 1 FIXED DOSE
     Route: 048
     Dates: start: 2014, end: 20140407

REACTIONS (1)
  - Iron deficiency anaemia [Not Recovered/Not Resolved]
